FAERS Safety Report 5807639-7 (Version None)
Quarter: 2008Q3

REPORT INFORMATION
  Report Type: 
  Country: None (occurrence: None)
  Receive Date: 20080711
  Receipt Date: 20080702
  Transmission Date: 20090109
  Serious: Yes (Death, Other)
  Sender: FDA-Public Use
  Company Number: US-ROCHE-573647

PATIENT
  Sex: Female
  Weight: 72.6 kg

DRUGS (1)
  1. CAPECITABINE [Suspect]
     Dosage: TDD: 6 TABLETS DAILY
     Route: 065
     Dates: start: 20080425

REACTIONS (2)
  - DEATH [None]
  - DIARRHOEA [None]
